FAERS Safety Report 5188324-4 (Version None)
Quarter: 2006Q4

REPORT INFORMATION
  Report Type: 
  Country: None (occurrence: None)
  Receive Date: 20061221
  Receipt Date: 20060411
  Transmission Date: 20070319
  Serious: Yes (Hospitalization)
  Sender: FDA-Public Use
  Company Number: US-ELI_LILLY_AND_COMPANY-US200604002028

PATIENT
  Age: 69 Year
  Sex: Female
  Weight: 34.92 kg

DRUGS (8)
  1. ACIPHEX [Concomitant]
  2. PREGABALIN [Concomitant]
  3. DILAUDID                                /CAN/ [Concomitant]
  4. OXYCODONE HCL [Concomitant]
  5. FORTEO [Suspect]
     Indication: OSTEOPOROSIS
  6. FORTEO [Suspect]
     Dosage: 20 UG, DAILY (1/D)
     Dates: start: 20040901
  7. FORTEO [Suspect]
     Dates: start: 20060322
  8. LOMOTIL [Concomitant]

REACTIONS (14)
  - ABDOMINAL PAIN UPPER [None]
  - CONTUSION [None]
  - DEHYDRATION [None]
  - DENTAL CARIES [None]
  - DIARRHOEA [None]
  - DIZZINESS [None]
  - GASTROINTESTINAL DISORDER [None]
  - INJECTION SITE ERYTHEMA [None]
  - INJECTION SITE PAIN [None]
  - MUSCLE SPASMS [None]
  - PAIN IN EXTREMITY [None]
  - PHARMACEUTICAL PRODUCT COMPLAINT [None]
  - TINNITUS [None]
  - VISION BLURRED [None]
